FAERS Safety Report 19189776 (Version 4)
Quarter: 2021Q4

REPORT INFORMATION
  Report Type: Report from Study
  Country: US (occurrence: US)
  Receive Date: 20210428
  Receipt Date: 20211210
  Transmission Date: 20220303
  Serious: Yes (Other)
  Sender: FDA-Public Use
  Company Number: US-NOVARTISPH-NVSC2021US095708

PATIENT
  Age: 65 Year
  Sex: Female

DRUGS (3)
  1. ENTRESTO [Suspect]
     Active Substance: SACUBITRIL\VALSARTAN
     Indication: Cardiac failure
     Dosage: 100 MG (49/51 MG), BID
     Route: 048
     Dates: start: 202103
  2. HYDRALAZINE [Suspect]
     Active Substance: HYDRALAZINE HYDROCHLORIDE
     Indication: Product used for unknown indication
     Dosage: 50 MG
     Route: 065
  3. HYDRALAZINE [Suspect]
     Active Substance: HYDRALAZINE HYDROCHLORIDE
     Dosage: 100 MG, TID
     Route: 065
     Dates: start: 20211124

REACTIONS (6)
  - Hypertension [Unknown]
  - Weight decreased [Recovered/Resolved]
  - Colitis [Unknown]
  - Diarrhoea [Unknown]
  - Insomnia [Unknown]
  - Anxiety [Unknown]

NARRATIVE: CASE EVENT DATE: 20210301
